FAERS Safety Report 5094408-1 (Version None)
Quarter: 2006Q3

REPORT INFORMATION
  Report Type: 
  Country: None (occurrence: None)
  Receive Date: 20060731
  Receipt Date: 20060425
  Transmission Date: 20061208
  Serious: No
  Sender: FDA-Public Use
  Company Number: 2006PV012661

PATIENT
  Age: 41 Year
  Sex: Female
  Weight: 148.3262 kg

DRUGS (6)
  1. BYETTA [Suspect]
     Indication: DIABETES MELLITUS NON-INSULIN-DEPENDENT
     Dosage: 5 MCG;BID;SC
     Route: 058
     Dates: start: 20060328, end: 20060330
  2. LANTUS [Concomitant]
  3. CRESTOR [Concomitant]
  4. CYMBALTA [Concomitant]
  5. GLUCOPHAGE [Concomitant]
  6. HUMULIN 70/30 [Concomitant]

REACTIONS (3)
  - DYSPNOEA [None]
  - MYALGIA [None]
  - WEIGHT INCREASED [None]
